FAERS Safety Report 10555394 (Version 2)
Quarter: 2014Q4

REPORT INFORMATION
  Report Type: Spontaneous
  Country: US (occurrence: US)
  Receive Date: 20141030
  Receipt Date: 20141204
  Transmission Date: 20150529
  Serious: Yes (Hospitalization, Other)
  Sender: FDA-Public Use
  Company Number: US-BAYER-2014-159258

PATIENT
  Age: 21 Year
  Sex: Female

DRUGS (3)
  1. MIRENA [Suspect]
     Active Substance: LEVONORGESTREL
     Indication: CONTRACEPTION
     Dosage: 20 MCG/24HR, CONT
     Route: 015
     Dates: start: 20071031, end: 20100607
  2. ORTHO CYCLEN [Concomitant]
     Active Substance: ETHINYL ESTRADIOL\NORGESTIMATE
  3. CYTOTEC [Concomitant]
     Active Substance: MISOPROSTOL
     Dosage: 200 MCG

REACTIONS (12)
  - Pelvic pain [None]
  - Anxiety [None]
  - Depression [None]
  - Injury [None]
  - Fear [None]
  - Genital haemorrhage [None]
  - Medical device discomfort [None]
  - Internal injury [None]
  - Abdominal pain [None]
  - Emotional distress [None]
  - Depressed mood [None]
  - Uterine perforation [None]

NARRATIVE: CASE EVENT DATE: 201004
